FAERS Safety Report 14320227 (Version 1)
Quarter: 2017Q4

REPORT INFORMATION
  Report Type: Spontaneous
  Country: US (occurrence: US)
  Receive Date: 20171222
  Receipt Date: 20171222
  Transmission Date: 20180321
  Serious: Yes (Death)
  Sender: FDA-Public Use
  Company Number: None

PATIENT
  Sex: Female

DRUGS (18)
  1. PREDNISONE. [Concomitant]
     Active Substance: PREDNISONE
  2. ESBRIET [Suspect]
     Active Substance: PIRFENIDONE
     Indication: PRODUCT USED FOR UNKNOWN INDICATION
     Route: 048
     Dates: start: 20170527, end: 2017
  3. LEVOTHYROXINE. [Concomitant]
     Active Substance: LEVOTHYROXINE
  4. PROPAFENONE. [Concomitant]
     Active Substance: PROPAFENONE
  5. CLOPIDOGREL [Concomitant]
     Active Substance: CLOPIDOGREL BISULFATE
  6. SOTALOL. [Concomitant]
     Active Substance: SOTALOL
  7. VERAPAMIL [Concomitant]
     Active Substance: VERAPAMIL HYDROCHLORIDE
  8. CYANOCOBALAMIN. [Concomitant]
     Active Substance: CYANOCOBALAMIN
  9. MOMETASONE [Concomitant]
     Active Substance: MOMETASONE
  10. TRAMADOL. [Concomitant]
     Active Substance: TRAMADOL
  11. SERTRALINE [Concomitant]
     Active Substance: SERTRALINE HYDROCHLORIDE
  12. CARVEDILOL. [Concomitant]
     Active Substance: CARVEDILOL
  13. ATORVASTATIN [Concomitant]
     Active Substance: ATORVASTATIN
  14. THEO-24 [Concomitant]
     Active Substance: THEOPHYLLINE ANHYDROUS
  15. CLONAZEPAM. [Concomitant]
     Active Substance: CLONAZEPAM
  16. AYR [Concomitant]
  17. METHOCARBAMOL. [Concomitant]
     Active Substance: METHOCARBAMOL
  18. CEFDINIR. [Concomitant]
     Active Substance: CEFDINIR

REACTIONS (1)
  - Death [None]

NARRATIVE: CASE EVENT DATE: 2017
